FAERS Safety Report 9029669 (Version 1)
Quarter: 2013Q1

REPORT INFORMATION
  Report Type: Spontaneous
  Country: US (occurrence: US)
  Receive Date: 20130125
  Receipt Date: 20130125
  Transmission Date: 20140127
  Serious: Yes (Death)
  Sender: FDA-Public Use
  Company Number: PHHY2013US007176

PATIENT
  Age: 66 Year
  Sex: Female

DRUGS (11)
  1. METHYLPHENIDATE [Suspect]
  2. PARACETAMOL [Suspect]
  3. ESCITALOPRAM [Suspect]
  4. ARIPIPRAZOLE [Suspect]
  5. SIMVASTATIN [Suspect]
  6. PROPOXYPHENE HYDROCHLORIDE [Suspect]
  7. OXYCODONE HYDROCHLORIDE [Suspect]
  8. TRIAZOLAM [Suspect]
  9. LITHIUM [Suspect]
  10. HYDROCODONE [Suspect]
  11. VALACYCLOVIR [Suspect]

REACTIONS (1)
  - Completed suicide [Fatal]
